FAERS Safety Report 5741059-9 (Version None)
Quarter: 2008Q2

REPORT INFORMATION
  Report Type: 
  Country: None (occurrence: None)
  Receive Date: 20080516
  Receipt Date: 20080506
  Transmission Date: 20081010
  Serious: Yes (Other)
  Sender: FDA-Public Use
  Company Number: CL-PFIZER INC-2008039731

PATIENT
  Age: 73 Year
  Sex: Female

DRUGS (6)
  1. MEDROL [Suspect]
     Indication: PAIN IN EXTREMITY
     Route: 048
  2. GLUCOSAMINE [Concomitant]
     Indication: OSTEOARTHRITIS
  3. EUTIROX [Concomitant]
     Indication: ILL-DEFINED DISORDER
  4. CALCIUM CARBONATE [Concomitant]
     Indication: OSTEOARTHRITIS
  5. ACETAMINOPHEN [Concomitant]
  6. CORTICOSTEROIDS [Concomitant]

REACTIONS (6)
  - ADVERSE DRUG REACTION [None]
  - CONTUSION [None]
  - PAIN IN EXTREMITY [None]
  - PRURITUS [None]
  - SWELLING [None]
  - SWELLING FACE [None]
